FAERS Safety Report 21341068 (Version 1)
Quarter: 2022Q3

REPORT INFORMATION
  Report Type: Spontaneous
  Country: MX (occurrence: None)
  Receive Date: 20220916
  Receipt Date: 20220916
  Transmission Date: 20221027
  Serious: Yes (Other)
  Sender: FDA-Public Use
  Company Number: MX-ROCHE-3179138

PATIENT
  Sex: Female
  Weight: 78 kg

DRUGS (11)
  1. TOCILIZUMAB [Suspect]
     Active Substance: TOCILIZUMAB
     Indication: Rheumatoid arthritis
     Dosage: (SEPTEMBER/ OCTOBER)
     Route: 042
  2. CELECOXIB [Concomitant]
     Active Substance: CELECOXIB
     Dosage: DOSE WAS NOT REPORTED
  3. FOLIC ACID [Concomitant]
     Active Substance: FOLIC ACID
     Dosage: DOSE WAS NOT REPORTED
  4. PREGABALIN [Concomitant]
     Active Substance: PREGABALIN
     Dosage: AT NIGHT
  5. DEFLAZACORT [Concomitant]
     Active Substance: DEFLAZACORT
     Dosage: A QUARTER OF A UNIT
  6. CALCIUM PANTOTHENATE\CYANOCOBALAMIN\NIACINAMIDE\PYRIDOXINE HYDROCHLORI [Concomitant]
     Active Substance: CALCIUM PANTOTHENATE\CYANOCOBALAMIN\NIACINAMIDE\PYRIDOXINE HYDROCHLORIDE\RIBOFLAVIN\THIAMINE MONONIT
     Dosage: DOSE WAS NOT REPORTED
  7. LEVOTHYROXINE [Concomitant]
     Active Substance: LEVOTHYROXINE
  8. AZATHIOPRINE [Concomitant]
     Active Substance: AZATHIOPRINE
     Dosage: MONDAY/FRIDAY
  9. METHOTREXATE [Concomitant]
     Active Substance: METHOTREXATE
     Indication: Mucosal inflammation
     Dosage: DOSE AND FREQUENCY WERE NOT REPORTED
  10. LEFLUNOMIDE [Concomitant]
     Active Substance: LEFLUNOMIDE
     Indication: Pancytopenia
     Dosage: DOSE AND FREQUENCY WERE NOT REPORTED
  11. CHLOROQUINE [Concomitant]
     Active Substance: CHLOROQUINE
     Dosage: DOSE AND FREQUENCY WERE NOT REPORTED

REACTIONS (7)
  - Bipolar disorder [Unknown]
  - Hypothyroidism [Unknown]
  - Hypersensitivity [Unknown]
  - Mucosal inflammation [Unknown]
  - Pancytopenia [Unknown]
  - Gastric disorder [Unknown]
  - Back pain [Unknown]
